FAERS Safety Report 7336162-6 (Version None)
Quarter: 2011Q1

REPORT INFORMATION
  Report Type: 
  Country: None (occurrence: None)
  Receive Date: 20110302
  Receipt Date: 20110302
  Transmission Date: 20110831
  Serious: Yes (Life-Threatening)
  Sender: FDA-Public Use
  Company Number: None

PATIENT
  Sex: Female
  Weight: 54.5 kg

DRUGS (2)
  1. WARFARIN SODIUM [Suspect]
     Indication: DEEP VEIN THROMBOSIS
     Dosage: 6 MG DAILY P.O.
     Route: 048
     Dates: start: 20100628
  2. WARFARIN 1 MG UNKNOWN [Suspect]
     Dosage: 1 MG DAILY P.O.
     Route: 048

REACTIONS (1)
  - DRUG LEVEL CHANGED [None]
